FAERS Safety Report 8408035 (Version 6)
Quarter: 2012Q4

REPORT INFORMATION
  Report Type: 
  Country: FR (occurrence: FR)
  Receive Date: 20120216
  Receipt Date: 20121030
  Transmission Date: 20130627
  Serious: Yes (Life-Threatening, Hospitalization, Disabling)
  Sender: FDA-Public Use
  Company Number: FR-BIOGENIDEC-2012BI004792

PATIENT
  Age: 45 Year
  Sex: Female
  Weight: 66 kg

DRUGS (4)
  1. TYSABRI [Suspect]
     Indication: MULTIPLE SCLEROSIS
     Route: 042
     Dates: start: 20110414, end: 20120202
  2. TEGRETOL [Concomitant]
     Route: 048
     Dates: start: 201105, end: 20120202
  3. GABAPENTINE [Concomitant]
     Dates: start: 201104, end: 20120202
  4. AMANTADINE [Concomitant]
     Dates: start: 2010, end: 20120202

REACTIONS (2)
  - Bone marrow failure [Not Recovered/Not Resolved]
  - Gastroenteritis [Recovered/Resolved]
